FAERS Safety Report 10903400 (Version 1)
Quarter: 2015Q1

REPORT INFORMATION
  Report Type: Report from Study
  Country: CO (occurrence: CO)
  Receive Date: 20150311
  Receipt Date: 20150311
  Transmission Date: 20150721
  Serious: Yes (Hospitalization)
  Sender: FDA-Public Use
  Company Number: CO-ROCHE-1519836

PATIENT
  Sex: Female
  Weight: 69.5 kg

DRUGS (1)
  1. XOLAIR [Suspect]
     Active Substance: OMALIZUMAB
     Indication: ASTHMA
     Dosage: 6 DF, QMO
     Route: 058
     Dates: start: 20140310

REACTIONS (5)
  - Viral infection [Unknown]
  - Vomiting [Unknown]
  - Hypersensitivity [Unknown]
  - Malaise [Unknown]
  - Hypoaesthesia [Unknown]
